FAERS Safety Report 7949342-3 (Version None)
Quarter: 2011Q4

REPORT INFORMATION
  Report Type: 
  Country: None (occurrence: None)
  Receive Date: 20111125
  Receipt Date: 20111109
  Transmission Date: 20120403
  Serious: Yes (Other)
  Sender: FDA-Public Use
  Company Number: 2009S1008614

PATIENT
  Age: 48 Year
  Sex: Male
  Weight: 129.2752 kg

DRUGS (9)
  1. DULCOLAX [Suspect]
     Indication: COLONOSCOPY
     Dosage: 4 UNIT; TOTAL; PO
     Route: 048
     Dates: start: 20030623, end: 20030623
  2. GLUCOPHAGE [Concomitant]
  3. LANTUS [Concomitant]
  4. ALTACE [Concomitant]
  5. GLUCOPHAGE [Concomitant]
  6. AMARYL [Concomitant]
  7. ASPIRIN [Concomitant]
  8. SODIUM PHOSPHATE MONOBASIC MONOHYDRATE AND NAPO4 DIBASIC ANHYDROUS [Suspect]
     Indication: COLONOSCOPY
     Dosage: 90 ML; TOTAL; PO
     Route: 048
     Dates: start: 20030623, end: 20030624
  9. LUPRON [Concomitant]

REACTIONS (1)
  - RENAL FAILURE [None]
